FAERS Safety Report 5306994-4 (Version None)
Quarter: 2007Q2

REPORT INFORMATION
  Report Type: 
  Country: None (occurrence: None)
  Receive Date: 20070418
  Receipt Date: 20070413
  Transmission Date: 20071010
  Serious: No
  Sender: FDA-Public Use
  Company Number: THQ2007A00223

PATIENT
  Age: 36 Year
  Sex: Male

DRUGS (1)
  1. ACTOS [Suspect]
     Indication: DIABETES MELLITUS NON-INSULIN-DEPENDENT
     Dosage: 45 MG (45 MG, 1 IN 1 D), PER ORAL
     Route: 048
     Dates: start: 20070101, end: 20070301

REACTIONS (4)
  - ACCOMMODATION DISORDER [None]
  - HYPERMETROPIA [None]
  - MYDRIASIS [None]
  - VISUAL DISTURBANCE [None]
